FAERS Safety Report 9775218 (Version 1)
Quarter: 2013Q4

REPORT INFORMATION
  Report Type: Spontaneous
  Country: US (occurrence: US)
  Receive Date: 20131220
  Receipt Date: 20131220
  Transmission Date: 20140711
  Serious: No
  Sender: FDA-Public Use
  Company Number: US-GALDERMA-US13003054

PATIENT
  Sex: Female

DRUGS (3)
  1. MIRVASO (BRIMONIDINE) TOPICAL GEL, 0.33% [Suspect]
     Indication: ROSACEA
     Dosage: 0.33%
     Route: 061
     Dates: start: 201309
  2. TRETINOIN [Concomitant]
     Indication: ROSACEA
     Route: 061
     Dates: start: 201307
  3. ACZONE (DAPSONE) GEL 5% [Concomitant]
     Indication: ROSACEA
     Dosage: 5%
     Route: 061
     Dates: start: 201307

REACTIONS (5)
  - Rebound effect [Recovered/Resolved]
  - Skin discolouration [Recovered/Resolved]
  - Pain of skin [Recovered/Resolved]
  - Erythema [Recovered/Resolved]
  - Skin warm [Recovered/Resolved]
